FAERS Safety Report 7444827-0 (Version None)
Quarter: 2011Q2

REPORT INFORMATION
  Report Type: 
  Country: None (occurrence: None)
  Receive Date: 20110429
  Receipt Date: 20110422
  Transmission Date: 20111010
  Serious: Yes (Hospitalization, Other)
  Sender: FDA-Public Use
  Company Number: US-ROXANE LABORATORIES, INC.-2011-RO-00558RO

PATIENT
  Age: 52 Year
  Sex: Male

DRUGS (10)
  1. PREDNISONE [Suspect]
     Indication: PULMONARY SARCOIDOSIS
     Dosage: 40 MG
  2. PANTOPRAZOLE [Suspect]
     Dosage: 20 MG
  3. ALBUTEROL [Suspect]
  4. AZATHIOPRINE [Suspect]
     Indication: PULMONARY SARCOIDOSIS
     Dosage: 50 MG
  5. PREDNISONE [Suspect]
     Dosage: 30 MG
  6. ZOLPIDEM [Suspect]
     Dosage: 10 MG
  7. LOVASTATIN [Suspect]
     Dosage: 20 MG
  8. IBANDRONATE [Suspect]
  9. HYDROXYCHLOROQUINE [Suspect]
     Indication: PULMONARY SARCOIDOSIS
     Dosage: 400 MG
  10. FLUTICASONE/SALMETEROL [Suspect]

REACTIONS (3)
  - DYSPNOEA [None]
  - PYREXIA [None]
  - RENAL FAILURE ACUTE [None]
